FAERS Safety Report 8339266-4 (Version None)
Quarter: 2012Q2

REPORT INFORMATION
  Report Type: 
  Country: None (occurrence: None)
  Receive Date: 20120507
  Receipt Date: 20120424
  Transmission Date: 20120825
  Serious: Yes (Other)
  Sender: FDA-Public Use
  Company Number: CA-JNJFOC-20120411733

PATIENT
  Sex: Female
  Weight: 82 kg

DRUGS (4)
  1. REMICADE [Suspect]
     Indication: CROHN'S DISEASE
     Dosage: 52 WEEKS
     Route: 042
     Dates: start: 20110119
  2. METHOTREXATE [Concomitant]
     Route: 048
  3. SYNTHROID [Concomitant]
  4. ATACAND [Concomitant]
     Route: 048

REACTIONS (6)
  - EYE PAIN [None]
  - MALAISE [None]
  - FATIGUE [None]
  - POST PROCEDURAL HAEMORRHAGE [None]
  - PAIN [None]
  - ANAL FISTULA [None]
